FAERS Safety Report 14836732 (Version 1)
Quarter: 2018Q2

REPORT INFORMATION
  Report Type: Report from Study
  Country: US (occurrence: US)
  Receive Date: 20180502
  Receipt Date: 20180502
  Transmission Date: 20180711
  Serious: Yes (Other)
  Sender: FDA-Public Use
  Company Number: US-TESARO, INC.-US-2017TSO03521

PATIENT

DRUGS (2)
  1. ZEJULA [Suspect]
     Active Substance: NIRAPARIB
     Dosage: 200 MG, QD
     Route: 048
     Dates: end: 20171101
  2. ZEJULA [Suspect]
     Active Substance: NIRAPARIB
     Indication: KAPOSI^S SARCOMA
     Dosage: 200 MG, QD
     Route: 048
     Dates: start: 20171002

REACTIONS (7)
  - Oropharyngeal pain [Not Recovered/Not Resolved]
  - Weight decreased [Not Recovered/Not Resolved]
  - Stomatitis [Not Recovered/Not Resolved]
  - Decreased appetite [Not Recovered/Not Resolved]
  - Fatigue [Not Recovered/Not Resolved]
  - Peritoneal neoplasm [Unknown]
  - Product use in unapproved indication [Not Recovered/Not Resolved]
